FAERS Safety Report 7119678-7 (Version None)
Quarter: 2010Q4

REPORT INFORMATION
  Report Type: 
  Country: None (occurrence: None)
  Receive Date: 20101112
  Receipt Date: 20100617
  Transmission Date: 20110411
  Serious: Yes (Death, Hospitalization)
  Sender: FDA-Public Use
  Company Number: JPI-P-010618

PATIENT
  Age: 59 Year
  Sex: Male

DRUGS (5)
  1. XYREM [Suspect]
     Indication: PRODUCT USED FOR UNKNOWN INDICATION
     Dosage: (4.5 GM),ORAL ; (9 GM),ORAL
     Route: 048
     Dates: start: 20090823, end: 20091104
  2. XYREM [Suspect]
     Indication: PRODUCT USED FOR UNKNOWN INDICATION
     Dosage: (4.5 GM),ORAL ; (9 GM),ORAL
     Route: 048
     Dates: start: 20091105, end: 20091226
  3. CLOMIPRAMINE HCL [Concomitant]
  4. DEXAMPHETAMINE HYDROCHLORIDE [Concomitant]
  5. FRUSEMIDE [Concomitant]

REACTIONS (4)
  - CARDIAC FAILURE [None]
  - COR PULMONALE [None]
  - EMPHYSEMA [None]
  - MITRAL VALVE INCOMPETENCE [None]
